FAERS Safety Report 4270533-X (Version None)
Quarter: 2004Q1

REPORT INFORMATION
  Report Type: 
  Country: None (occurrence: None)
  Receive Date: 20040114
  Receipt Date: 20040106
  Transmission Date: 20041129
  Serious: Yes (Other)
  Sender: FDA-Public Use
  Company Number: GB-GLAXOSMITHKLINE-B0319125A

PATIENT
  Age: 41 Year
  Sex: Male

DRUGS (4)
  1. ZYBAN [Suspect]
     Indication: EX-SMOKER
     Route: 048
     Dates: start: 20031201, end: 20031208
  2. SERETIDE [Concomitant]
  3. SALBUTAMOL [Concomitant]
  4. PREDNISOLONE [Concomitant]
     Dosage: 40MG PER DAY
     Route: 048
     Dates: start: 20031120, end: 20031127

REACTIONS (2)
  - IRRITABILITY [None]
  - PERSONALITY CHANGE [None]
